FAERS Safety Report 5632811-9 (Version None)
Quarter: 2008Q1

REPORT INFORMATION
  Report Type: 
  Country: None (occurrence: None)
  Receive Date: 20080221
  Receipt Date: 20080208
  Transmission Date: 20080703
  Serious: Yes (Hospitalization)
  Sender: FDA-Public Use
  Company Number: DE-ELI_LILLY_AND_COMPANY-DE200802002043

PATIENT
  Sex: Male
  Weight: 74 kg

DRUGS (8)
  1. PEMETREXED [Suspect]
     Indication: NON-SMALL CELL LUNG CANCER
     Dosage: 950 D/F, UNKNOWN
     Dates: start: 20071113
  2. CARBOPLATIN [Suspect]
     Indication: NON-SMALL CELL LUNG CANCER
     Dosage: 700 D/F, UNKNOWN
     Dates: start: 20071113
  3. VITAMIN B-12 [Concomitant]
     Indication: PROPHYLAXIS
     Dosage: UNK, UNKNOWN
     Dates: start: 20071106
  4. FOLIC ACID [Concomitant]
     Indication: PROPHYLAXIS
     Dosage: UNK, UNKNOWN
     Dates: start: 20071106
  5. DEXAMETHASONE TAB [Concomitant]
     Indication: PROPHYLAXIS
     Dosage: UNK, UNKNOWN
     Dates: start: 20071106
  6. BISOPROLOL FUMARATE [Concomitant]
     Indication: ATRIAL FIBRILLATION
     Dosage: UNK, UNKNOWN
     Dates: start: 20071205
  7. DIGOXIN [Concomitant]
     Indication: ATRIAL FIBRILLATION
     Dosage: UNK, UNKNOWN
     Dates: start: 20071205
  8. PHENPROCOUMON [Concomitant]
     Indication: ATRIAL FIBRILLATION
     Dosage: UNK, UNKNOWN
     Dates: start: 20071205

REACTIONS (9)
  - ALANINE AMINOTRANSFERASE INCREASED [None]
  - ASPERGILLOMA [None]
  - BLOOD CALCIUM DECREASED [None]
  - BLOOD LACTATE DEHYDROGENASE INCREASED [None]
  - COMPUTERISED TOMOGRAM THORAX ABNORMAL [None]
  - LABORATORY TEST ABNORMAL [None]
  - MONOCYTE PERCENTAGE INCREASED [None]
  - PULMONARY CAVITATION [None]
  - THROMBOCYTOPENIA [None]
